FAERS Safety Report 6057954-X (Version None)
Quarter: 2009Q1

REPORT INFORMATION
  Report Type: 
  Country: None (occurrence: None)
  Receive Date: 20090129
  Receipt Date: 20090122
  Transmission Date: 20090719
  Serious: Yes (Other)
  Sender: FDA-Public Use
  Company Number: DE-B.I. PHARMACEUTICALS,INC./RIDGEFIELD-2009-DE-00766DE

PATIENT
  Age: 70 Year
  Sex: Female

DRUGS (1)
  1. AGGRENOX [Suspect]
     Dosage: 200 MG DIPYRIDAMOLE + 25 MG ACETYLISALICYLIC ACID

REACTIONS (2)
  - CONFUSIONAL STATE [None]
  - TRANSIENT ISCHAEMIC ATTACK [None]
